FAERS Safety Report 9607315 (Version 1)
Quarter: 2013Q4

REPORT INFORMATION
  Report Type: Spontaneous
  Country: US (occurrence: US)
  Receive Date: 20131009
  Receipt Date: 20131009
  Transmission Date: 20140711
  Serious: No
  Sender: FDA-Public Use
  Company Number: US-009507513-1309USA011686

PATIENT
  Sex: Female

DRUGS (1)
  1. ASMANEX TWISTHALER [Suspect]
     Dosage: 220 MCG TWICE A DAY
     Route: 055
     Dates: start: 20130919

REACTIONS (5)
  - Overdose [Unknown]
  - Underdose [Unknown]
  - Product packaging quantity issue [Unknown]
  - Product lot number issue [Unknown]
  - No adverse event [Unknown]
